FAERS Safety Report 6078828-4 (Version None)
Quarter: 2009Q1

REPORT INFORMATION
  Report Type: 
  Country: None (occurrence: None)
  Receive Date: 20090216
  Receipt Date: 20090114
  Transmission Date: 20090719
  Serious: No
  Sender: FDA-Public Use
  Company Number: US-BAYER-200910144BCC

PATIENT
  Age: 46 Year
  Sex: Male
  Weight: 75 kg

DRUGS (2)
  1. ALEVE (CAPLET) [Suspect]
     Indication: MIGRAINE
     Dosage: AS USED: 220 MG  UNIT DOSE: 220 MG
     Dates: start: 20090114
  2. VICODIN [Concomitant]

REACTIONS (1)
  - MIGRAINE [None]
